FAERS Safety Report 11239357 (Version 1)
Quarter: 2015Q3

REPORT INFORMATION
  Report Type: Spontaneous
  Country: None (occurrence: None)
  Receive Date: 20150701
  Receipt Date: 20150701
  Transmission Date: 20151125
  Serious: Yes (Other)
  Sender: FDA-Public Use
  Company Number: None

PATIENT
  Age: 27 Year
  Sex: Female
  Weight: 60.33 kg

DRUGS (4)
  1. LIALDA [Concomitant]
     Active Substance: MESALAMINE
  2. ZOLOFT [Suspect]
     Active Substance: SERTRALINE HYDROCHLORIDE
     Indication: DEPRESSION
     Dosage: 1
     Route: 048
     Dates: start: 20140515, end: 20140515
  3. ZOLOFT [Suspect]
     Active Substance: SERTRALINE HYDROCHLORIDE
     Indication: ANXIETY
     Dosage: 1
     Route: 048
     Dates: start: 20140515, end: 20140515
  4. WOMEN ONE A DAY MULTIVITAMIN [Concomitant]

REACTIONS (4)
  - Gait disturbance [None]
  - Abdominal pain upper [None]
  - Dysstasia [None]
  - Dehydration [None]
